FAERS Safety Report 12889836 (Version 1)
Quarter: 2016Q4

REPORT INFORMATION
  Report Type: Spontaneous
  Country: US (occurrence: US)
  Receive Date: 20161027
  Receipt Date: 20161027
  Transmission Date: 20170207
  Serious: No
  Sender: FDA-Public Use
  Company Number: US-PERRIGO-16US019450

PATIENT
  Sex: Male

DRUGS (5)
  1. UNISOM SLEEPTABS [Suspect]
     Active Substance: DOXYLAMINE SUCCINATE
     Dosage: 3/4 TABLET, SINGLE
     Route: 048
     Dates: start: 20160822, end: 20160822
  2. KLONOPIN [Suspect]
     Active Substance: CLONAZEPAM
     Indication: INSOMNIA
     Dosage: LESS THAN 0.5 MG, SINGLE
     Route: 065
     Dates: start: 20160823, end: 20160823
  3. UNISOM SLEEPTABS [Suspect]
     Active Substance: DOXYLAMINE SUCCINATE
     Indication: INSOMNIA
     Dosage: 25 MG, SINGLE
     Route: 048
     Dates: start: 20160820, end: 20160820
  4. UNISOM SLEEPTABS [Suspect]
     Active Substance: DOXYLAMINE SUCCINATE
     Dosage: 1/2 TABLET, SINGLE
     Route: 048
     Dates: start: 20160821, end: 20160821
  5. UNISOM SLEEPTABS [Suspect]
     Active Substance: DOXYLAMINE SUCCINATE
     Dosage: 25 MG, SINGLE
     Route: 048
     Dates: start: 20160823, end: 20160823

REACTIONS (6)
  - Hangover [Not Recovered/Not Resolved]
  - Fatigue [Unknown]
  - Incorrect dose administered [Recovered/Resolved]
  - Somnolence [Not Recovered/Not Resolved]
  - Drug ineffective [Recovered/Resolved]
  - Wrong technique in product usage process [Recovered/Resolved]

NARRATIVE: CASE EVENT DATE: 20160821
